FAERS Safety Report 7372814-X (Version None)
Quarter: 2011Q1

REPORT INFORMATION
  Report Type: 
  Country: None (occurrence: None)
  Receive Date: 20110324
  Receipt Date: 20110322
  Transmission Date: 20110831
  Serious: Yes (Other)
  Sender: FDA-Public Use
  Company Number: FR-ROCHE-760471

PATIENT
  Sex: Male
  Weight: 75 kg

DRUGS (2)
  1. AVASTIN [Suspect]
     Route: 042
     Dates: start: 20110125
  2. XELODA [Suspect]
     Route: 048
     Dates: start: 20110201

REACTIONS (5)
  - HEMIPARESIS [None]
  - RESPIRATORY DISORDER [None]
  - DIARRHOEA [None]
  - ABDOMINAL RIGIDITY [None]
  - SUBILEUS [None]
